FAERS Safety Report 6268024-X (Version None)
Quarter: 2009Q3

REPORT INFORMATION
  Report Type: 
  Country: None (occurrence: None)
  Receive Date: 20090713
  Receipt Date: 20090617
  Transmission Date: 20100115
  Serious: Yes (Hospitalization, Other)
  Sender: FDA-Public Use
  Company Number: ADE # 09-350DPR

PATIENT
  Age: 90 Year
  Sex: Female

DRUGS (1)
  1. DIGOXIN [Suspect]

REACTIONS (5)
  - CARDIOACTIVE DRUG LEVEL INCREASED [None]
  - CONSTIPATION [None]
  - DECREASED APPETITE [None]
  - ECONOMIC PROBLEM [None]
  - WEIGHT DECREASED [None]
